FAERS Safety Report 19029299 (Version 3)
Quarter: 2021Q2

REPORT INFORMATION
  Report Type: Report from Study
  Country: DE (occurrence: DE)
  Receive Date: 20210319
  Receipt Date: 20210409
  Transmission Date: 20210717
  Serious: Yes (Death, Other)
  Sender: FDA-Public Use
  Company Number: DE-SUN PHARMACEUTICAL INDUSTRIES LTD-2021RR-286477

PATIENT
  Age: 77 Year
  Sex: Female

DRUGS (8)
  1. OPIPRAMOL NEURAXPHARM 50 [Concomitant]
     Indication: PRE-EXISTING DISEASE
     Dosage: 50 MILLIGRAM, BID
     Route: 048
  2. L?THYROXIN BETA 25 [Concomitant]
     Indication: PRE-EXISTING DISEASE
     Dosage: 25 MICROGRAM, DAILY
     Route: 048
  3. TROMCARDIN COMPLEX [Concomitant]
     Active Substance: DIETARY SUPPLEMENT
     Indication: PRE-EXISTING DISEASE
     Dosage: DOSE AS REQUIRED, DAILY
     Route: 048
  4. METROPOLOL SUCCINAT 47,5 [Concomitant]
     Indication: PRE-EXISTING DISEASE
     Dosage: 47.5 MILLIGRAM, BID
     Route: 048
  5. RAMIPRIL 1A PHARMA 2,5 [Concomitant]
     Indication: PRE-EXISTING DISEASE
     Dosage: 2.5 MILLIGRAM, TID
     Route: 048
  6. TURFA GAMMA [Concomitant]
     Indication: PROPHYLAXIS
     Dosage: DOSE AS REQUIRED, DAILY
     Route: 048
  7. ODOMZO [Suspect]
     Active Substance: SONIDEGIB
     Indication: BASAL CELL CARCINOMA
     Dosage: 200 MILLIGRAM, DAILY
     Route: 048
     Dates: start: 20200116, end: 20200229
  8. EBRANTIL 90 [Concomitant]
     Indication: PRE-EXISTING DISEASE
     Dosage: 90 MILLIGRAM, BID
     Route: 048

REACTIONS (1)
  - Atrial fibrillation [Not Recovered/Not Resolved]

NARRATIVE: CASE EVENT DATE: 20200301
